FAERS Safety Report 14235660 (Version 1)
Quarter: 2017Q4

REPORT INFORMATION
  Report Type: Spontaneous
  Country: FR (occurrence: FR)
  Receive Date: 20171129
  Receipt Date: 20171129
  Transmission Date: 20180321
  Serious: Yes (Death)
  Sender: FDA-Public Use
  Company Number: FR-JNJFOC-20171133183

PATIENT
  Age: 85 Year
  Sex: Female

DRUGS (1)
  1. XARELTO [Suspect]
     Active Substance: RIVAROXABAN
     Indication: CEREBROVASCULAR ACCIDENT
     Route: 048

REACTIONS (6)
  - Malaise [Fatal]
  - Cardio-respiratory arrest [Fatal]
  - Haemorrhage [Fatal]
  - Anaemia [Fatal]
  - Haemorrhage subcutaneous [Fatal]
  - Pallor [Fatal]

NARRATIVE: CASE EVENT DATE: 20171025
